FAERS Safety Report 26078044 (Version 2)
Quarter: 2025Q4

REPORT INFORMATION
  Report Type: Spontaneous
  Country: US (occurrence: US)
  Receive Date: 20251122
  Receipt Date: 20251216
  Transmission Date: 20260118
  Serious: No
  Sender: DR REDDYS
  Company Number: US-DRL-USA-USA/2025/11/016637

PATIENT
  Age: 87 Year
  Sex: Male
  Weight: 77.11 kg

DRUGS (1)
  1. FLUOROURACIL [Suspect]
     Active Substance: FLUOROURACIL
     Indication: Neoplasm malignant
     Route: 061
     Dates: start: 202510

REACTIONS (1)
  - Dermal absorption impaired [Recovered/Resolved]

NARRATIVE: CASE EVENT DATE: 20251001
